FAERS Safety Report 7408379-3 (Version None)
Quarter: 2011Q1

REPORT INFORMATION
  Report Type: 
  Country: None (occurrence: None)
  Receive Date: 20110301
  Receipt Date: 20101102
  Transmission Date: 20110831
  Serious: Yes (Other)
  Sender: FDA-Public Use
  Company Number: ALA_01056_2010

PATIENT
  Sex: Male

DRUGS (3)
  1. REGLAN [Suspect]
     Indication: PRODUCT USED FOR UNKNOWN INDICATION
     Dosage: SEE IMAGE
     Route: 048
     Dates: start: 20010701, end: 20090901
  2. REGLAN [Suspect]
     Indication: PRODUCT USED FOR UNKNOWN INDICATION
     Dosage: SEE IMAGE
     Route: 048
     Dates: start: 20010701, end: 20090901
  3. REGLAN [Suspect]
     Indication: PRODUCT USED FOR UNKNOWN INDICATION
     Dosage: SEE IMAGE
     Route: 048
     Dates: start: 20010701, end: 20090901

REACTIONS (4)
  - RESTLESS LEGS SYNDROME [None]
  - TARDIVE DYSKINESIA [None]
  - PARKINSON'S DISEASE [None]
  - TREMOR [None]
